FAERS Safety Report 23946708 (Version 1)
Quarter: 2024Q2

REPORT INFORMATION
  Report Type: Spontaneous
  Country: US (occurrence: None)
  Receive Date: 20240606
  Receipt Date: 20240606
  Transmission Date: 20240716
  Serious: No
  Sender: FDA-Public Use
  Company Number: None

PATIENT
  Age: 55 Year
  Sex: Female
  Weight: 99 kg

DRUGS (1)
  1. OZEMPIC [Suspect]
     Active Substance: SEMAGLUTIDE
     Indication: Type 2 diabetes mellitus
     Dates: start: 20240506

REACTIONS (8)
  - Eructation [None]
  - Dyspepsia [None]
  - Flatulence [None]
  - Constipation [None]
  - Nausea [None]
  - Vomiting [None]
  - Gastrooesophageal reflux disease [None]
  - Condition aggravated [None]

NARRATIVE: CASE EVENT DATE: 20240506
